FAERS Safety Report 9271866 (Version 1)
Quarter: 2013Q2

REPORT INFORMATION
  Report Type: Spontaneous
  Country: US (occurrence: US)
  Receive Date: 20130506
  Receipt Date: 20130506
  Transmission Date: 20140414
  Serious: Yes (Other)
  Sender: FDA-Public Use
  Company Number: US-JNJFOC-20130413899

PATIENT
  Age: 29 Year
  Sex: Female
  Weight: 72.58 kg

DRUGS (4)
  1. ELMIRON [Suspect]
     Indication: CYSTITIS INTERSTITIAL
     Route: 065
     Dates: start: 201212, end: 201301
  2. CELEXA [Concomitant]
     Indication: DEPRESSION
     Route: 065
  3. SINGULAIR [Concomitant]
     Indication: AUTOIMMUNE DISORDER
     Route: 065
  4. CLARITIN [Concomitant]
     Indication: AUTOIMMUNE DISORDER
     Route: 065

REACTIONS (2)
  - Blood urine present [Unknown]
  - Cystitis interstitial [Not Recovered/Not Resolved]
